FAERS Safety Report 5318680-5 (Version None)
Quarter: 2007Q2

REPORT INFORMATION
  Report Type: 
  Country: None (occurrence: None)
  Receive Date: 20070508
  Receipt Date: 20070502
  Transmission Date: 20071010
  Serious: Yes (Death)
  Sender: FDA-Public Use
  Company Number: FR-SANOFI-SYNTHELABO-F01200700574

PATIENT
  Sex: Male
  Weight: 63 kg

DRUGS (4)
  1. FLUOROURACIL [Suspect]
     Dosage: 700 MG BOLUS FOLLOWED BY 2100 MG INFUSION
     Route: 041
     Dates: start: 20060717, end: 20060718
  2. LEUCOVORIN CALCIUM [Suspect]
     Dosage: 350 MG
     Route: 041
     Dates: start: 20060717, end: 20060717
  3. CPT 11 [Suspect]
     Dosage: 315 MG
     Route: 041
     Dates: start: 20060717, end: 20060717
  4. OXALIPLATIN [Suspect]
     Indication: PANCREATIC CARCINOMA METASTATIC
     Dosage: 150 MG
     Route: 041
     Dates: start: 20060717, end: 20060717

REACTIONS (3)
  - ANOREXIA [None]
  - ASTHENIA [None]
  - GENERAL PHYSICAL HEALTH DETERIORATION [None]
